FAERS Safety Report 20696277 (Version 1)
Quarter: 2022Q2

REPORT INFORMATION
  Report Type: Spontaneous
  Country: US (occurrence: None)
  Receive Date: 20220409
  Receipt Date: 20220409
  Transmission Date: 20220721
  Serious: Yes (Hospitalization)
  Sender: FDA-Public Use
  Company Number: None

PATIENT
  Age: 75 Year
  Sex: Female
  Weight: 97.7 kg

DRUGS (10)
  1. CAPECITABINE [Suspect]
     Active Substance: CAPECITABINE
     Indication: Rectal cancer
     Dosage: FREQUENCY : TWICE A DAY;?
     Route: 048
     Dates: start: 20220329
  2. CAPECITABINE [Suspect]
     Active Substance: CAPECITABINE
     Indication: Anal cancer
  3. TRAMADOL [Concomitant]
     Active Substance: TRAMADOL
  4. QUINAPRIL [Concomitant]
     Active Substance: QUINAPRIL
  5. MITOMYCIN [Concomitant]
     Active Substance: MITOMYCIN
  6. MEGESTROL [Concomitant]
     Active Substance: MEGESTROL
  7. LEVOTHYROXINE [Concomitant]
     Active Substance: LEVOTHYROXINE
  8. HYDROCHLOROTHIAZIDE [Concomitant]
     Active Substance: HYDROCHLOROTHIAZIDE
  9. GABAPENTIN [Concomitant]
     Active Substance: GABAPENTIN
  10. DONEPEZIL [Concomitant]
     Active Substance: DONEPEZIL

REACTIONS (1)
  - Myocardial infarction [None]

NARRATIVE: CASE EVENT DATE: 20220408
